FAERS Safety Report 9370082 (Version 1)
Quarter: 2013Q2

REPORT INFORMATION
  Report Type: Spontaneous
  Country: US (occurrence: None)
  Receive Date: 20130621
  Receipt Date: 20130621
  Transmission Date: 20140414
  Serious: Yes (Hospitalization)
  Sender: FDA-Public Use
  Company Number: 2013AP006132

PATIENT
  Age: 38 Year
  Sex: Male

DRUGS (2)
  1. FENTANYL [Suspect]
     Route: 055
  2. FENTANYL [Concomitant]

REACTIONS (5)
  - Pneumonitis [None]
  - Pyrexia [None]
  - Confusional state [None]
  - Intentional drug misuse [None]
  - Drug abuse [None]
